FAERS Safety Report 22789424 (Version 3)
Quarter: 2023Q4

REPORT INFORMATION
  Report Type: Report from Study
  Country: US (occurrence: US)
  Receive Date: 20230804
  Receipt Date: 20231030
  Transmission Date: 20240110
  Serious: Yes (Hospitalization)
  Sender: FDA-Public Use
  Company Number: US-ABBVIE-5276258

PATIENT
  Age: 65 Year
  Sex: Female

DRUGS (3)
  1. HUMIRA [Suspect]
     Active Substance: ADALIMUMAB
     Indication: Hidradenitis
     Dosage: FORM STRENGTH: 40 MILLIGRAM
     Route: 058
     Dates: start: 20161027
  2. HUMIRA [Suspect]
     Active Substance: ADALIMUMAB
     Dosage: FORM STRENGTH: 40 MILLIGRAM
     Route: 058
     Dates: start: 201610, end: 201610
  3. HUMIRA [Suspect]
     Active Substance: ADALIMUMAB
     Dosage: FORM STRENGTH: 40 MILLIGRAM
     Route: 058
     Dates: start: 201610, end: 201610

REACTIONS (12)
  - Lumbar spinal stenosis [Recovered/Resolved]
  - Vertigo [Recovering/Resolving]
  - Meralgia paraesthetica [Recovering/Resolving]
  - Pain [Recovering/Resolving]
  - Spondylitis [Not Recovered/Not Resolved]
  - Vertigo [Recovered/Resolved]
  - Spinal fracture [Recovered/Resolved]
  - Pain in extremity [Recovering/Resolving]
  - Lumbar spinal stenosis [Recovering/Resolving]
  - Weight decreased [Unknown]
  - Back pain [Recovering/Resolving]
  - Vertigo [Recovered/Resolved]

NARRATIVE: CASE EVENT DATE: 20161001
